FAERS Safety Report 7274509-X (Version None)
Quarter: 2011Q1

REPORT INFORMATION
  Report Type: 
  Country: None (occurrence: None)
  Receive Date: 20110204
  Receipt Date: 20110131
  Transmission Date: 20110831
  Serious: Yes (Other)
  Sender: FDA-Public Use
  Company Number: US-PFIZER INC-2011023149

PATIENT
  Sex: Male

DRUGS (1)
  1. CHANTIX [Suspect]
     Dosage: UNK
     Dates: start: 20081201

REACTIONS (5)
  - LOSS OF CONSCIOUSNESS [None]
  - SUICIDAL IDEATION [None]
  - DEPRESSION [None]
  - ANXIETY [None]
  - ABNORMAL DREAMS [None]
